FAERS Safety Report 6231533-3 (Version None)
Quarter: 2009Q2

REPORT INFORMATION
  Report Type: 
  Country: None (occurrence: None)
  Receive Date: 20090616
  Receipt Date: 20090610
  Transmission Date: 20091009
  Serious: Yes (Hospitalization)
  Sender: FDA-Public Use
  Company Number: NL-JNJFOC-20090603482

PATIENT
  Sex: Male

DRUGS (5)
  1. RISERPDAL CONSTA [Suspect]
     Indication: SCHIZOPHRENIA
     Route: 030
  2. EFFEXOR [Concomitant]
  3. PROMETHAZINE [Concomitant]
  4. ZYRTEC [Concomitant]
  5. PANTAZOL [Concomitant]

REACTIONS (1)
  - SUICIDE ATTEMPT [None]
